FAERS Safety Report 16658264 (Version 2)
Quarter: 2019Q4

REPORT INFORMATION
  Report Type: Spontaneous
  Country: US (occurrence: US)
  Receive Date: 20190801
  Receipt Date: 20191216
  Transmission Date: 20200122
  Serious: Yes (Hospitalization)
  Sender: FDA-Public Use
  Company Number: US-TEVA-2019-US-1083282

PATIENT
  Age: 38 Year
  Sex: Female
  Weight: 85 kg

DRUGS (7)
  1. CLOZAPINE TEVA [Suspect]
     Active Substance: CLOZAPINE
     Indication: PSYCHOTIC DISORDER
     Dosage: 225 MILLIGRAM DAILY; AT BEDTIME
     Route: 065
     Dates: end: 20190722
  2. PROTONIX DR [Concomitant]
  3. CHLORPROMAZINE. [Concomitant]
     Active Substance: CHLORPROMAZINE
     Dosage: PRN
     Route: 065
  4. DEPAKOTE [Suspect]
     Active Substance: DIVALPROEX SODIUM
     Dosage: DELAYED RELEASE
     Route: 065
  5. COGENTIN [Concomitant]
     Active Substance: BENZTROPINE MESYLATE
  6. BENADRYL [Concomitant]
     Active Substance: DIPHENHYDRAMINE HYDROCHLORIDE
     Dosage: AS NEEDED MEDICATION
     Route: 065
  7. IPRATROPIUM BROMIDE. [Concomitant]
     Active Substance: IPRATROPIUM BROMIDE

REACTIONS (7)
  - Tachycardia [Unknown]
  - Aspartate aminotransferase increased [Recovered/Resolved]
  - Heart rate increased [Recovered/Resolved]
  - Antipsychotic drug level increased [Recovering/Resolving]
  - Blood pressure decreased [Unknown]
  - Alanine aminotransferase increased [Recovered/Resolved]
  - Abdominal pain [Recovered/Resolved]

NARRATIVE: CASE EVENT DATE: 20190624
